FAERS Safety Report 23786783 (Version 2)
Quarter: 2024Q4

REPORT INFORMATION
  Report Type: Spontaneous
  Country: FR (occurrence: FR)
  Receive Date: 20240426
  Receipt Date: 20241114
  Transmission Date: 20250115
  Serious: Yes (Hospitalization, Other)
  Sender: AUROBINDO
  Company Number: FR-AFSSAPS-LY2024000557

PATIENT
  Age: 25 Year
  Sex: Male
  Weight: 56 kg

DRUGS (1)
  1. METHYLPHENIDATE [Suspect]
     Active Substance: METHYLPHENIDATE
     Indication: Self-medication
     Dosage: 30 MILLIGRAM
     Route: 048
     Dates: start: 20231215, end: 20240322

REACTIONS (2)
  - Pancreatitis acute [Recovered/Resolved]
  - Intentional product misuse [Recovered/Resolved]

NARRATIVE: CASE EVENT DATE: 20240215
